FAERS Safety Report 15753119 (Version 1)
Quarter: 2018Q4

REPORT INFORMATION
  Report Type: Spontaneous
  Country: US (occurrence: US)
  Receive Date: 20181222
  Receipt Date: 20181222
  Transmission Date: 20190205
  Serious: No
  Sender: FDA-Public Use
  Company Number: US-UNITED THERAPEUTICS-UNT-2018-020991

PATIENT
  Age: 82 Year
  Sex: Female
  Weight: 77.7 kg

DRUGS (2)
  1. OPSUMIT [Concomitant]
     Active Substance: MACITENTAN
     Indication: PRODUCT USED FOR UNKNOWN INDICATION
     Dosage: UNK
     Route: 065
  2. TYVASO [Suspect]
     Active Substance: TREPROSTINIL
     Indication: PULMONARY ARTERIAL HYPERTENSION
     Dosage: 18-54 MICROGRAMS, QID
     Dates: start: 20170518

REACTIONS (6)
  - Nausea [Unknown]
  - Headache [Unknown]
  - Flatulence [Unknown]
  - Eructation [Unknown]
  - Vomiting [Unknown]
  - Diarrhoea [Unknown]

NARRATIVE: CASE EVENT DATE: 20181215
